FAERS Safety Report 16089291 (Version 1)
Quarter: 2019Q1

REPORT INFORMATION
  Report Type: Spontaneous
  Country: CA (occurrence: CA)
  Receive Date: 20190319
  Receipt Date: 20190319
  Transmission Date: 20190418
  Serious: Yes (Other)
  Sender: FDA-Public Use
  Company Number: CA-PFIZER INC-2019109473

PATIENT
  Age: 33 Year
  Sex: Female

DRUGS (1)
  1. PROSTIN E2 [Suspect]
     Active Substance: DINOPROSTONE
     Indication: LABOUR INDUCTION
     Dosage: 2 MG, UNK
     Dates: start: 20190302, end: 20190302

REACTIONS (2)
  - Uterine hypertonus [Unknown]
  - Premature separation of placenta [Unknown]

NARRATIVE: CASE EVENT DATE: 20190302
